FAERS Safety Report 19084532 (Version 2)
Quarter: 2021Q3

REPORT INFORMATION
  Report Type: Spontaneous
  Country: JP (occurrence: JP)
  Receive Date: 20210401
  Receipt Date: 20210805
  Transmission Date: 20211014
  Serious: Yes (Death)
  Sender: FDA-Public Use
  Company Number: JP-ROCHE-2800921

PATIENT
  Age: 81 Year
  Sex: Female
  Weight: 57 kg

DRUGS (3)
  1. PERJETA [Suspect]
     Active Substance: PERTUZUMAB
     Indication: BREAST CANCER
     Dosage: STRENGTH: 420MG/14ML?SINGLE
     Route: 041
     Dates: start: 20201117, end: 20201117
  2. TRASTUZUMAB BIOSIMILAR 1 [Suspect]
     Active Substance: TRASTUZUMAB
     Indication: BREAST CANCER
     Dosage: SINGLE
     Route: 041
     Dates: start: 20201117, end: 20201117
  3. HALAVEN [Suspect]
     Active Substance: ERIBULIN MESYLATE
     Indication: BREAST CANCER
     Dosage: SINGLE
     Route: 065
     Dates: start: 20201117, end: 20201117

REACTIONS (3)
  - Disseminated intravascular coagulation [Fatal]
  - Renal failure [Fatal]
  - Interstitial lung disease [Fatal]

NARRATIVE: CASE EVENT DATE: 20201130
